FAERS Safety Report 7525318-5 (Version None)
Quarter: 2011Q2

REPORT INFORMATION
  Report Type: 
  Country: None (occurrence: None)
  Receive Date: 20110606
  Receipt Date: 20110601
  Transmission Date: 20111010
  Serious: Yes (Other)
  Sender: FDA-Public Use
  Company Number: US-PFIZER INC-2011101041

PATIENT
  Sex: Male
  Weight: 81.633 kg

DRUGS (8)
  1. NORCO [Concomitant]
     Indication: BACK DISORDER
     Dosage: 10/350
     Route: 048
  2. KENALOG [Suspect]
     Indication: SKIN EXFOLIATION
  3. KENALOG [Suspect]
     Indication: PRURITUS
  4. VALIUM [Concomitant]
     Indication: NERVOUS SYSTEM DISORDER
     Dosage: 20 MG, 2X/DAY
     Route: 048
  5. LIPITOR [Concomitant]
     Indication: BLOOD CHOLESTEROL ABNORMAL
     Dosage: 10 MG, 1X/DAY
     Route: 048
  6. ZOLOFT [Suspect]
     Dosage: 50 MG, 1X/DAY
     Route: 048
     Dates: end: 20060101
  7. KENALOG [Suspect]
     Indication: ERYTHEMA
     Dosage: UNK
  8. ZOLOFT [Suspect]
     Indication: DEPRESSION
     Dosage: 100 MG, 1X/DAY
     Route: 048

REACTIONS (6)
  - MULTIPLE ALLERGIES [None]
  - DERMATITIS [None]
  - ERYTHEMA [None]
  - DRUG INEFFECTIVE [None]
  - PRURITUS [None]
  - SKIN EXFOLIATION [None]
